FAERS Safety Report 6446101-8 (Version None)
Quarter: 2009Q4

REPORT INFORMATION
  Report Type: 
  Country: None (occurrence: None)
  Receive Date: 20091119
  Receipt Date: 20091109
  Transmission Date: 20100525
  Serious: No
  Sender: FDA-Public Use
  Company Number: US-JNJFOC-20091103083

PATIENT
  Sex: Male
  Weight: 68.95 kg

DRUGS (8)
  1. FENTANYL CITRATE [Suspect]
     Indication: DRUG USE FOR UNKNOWN INDICATION
     Route: 062
     Dates: start: 20091108, end: 20091109
  2. PREVACID [Concomitant]
     Indication: GASTROOESOPHAGEAL REFLUX DISEASE
     Route: 048
  3. LOTREL [Concomitant]
     Indication: BLOOD PRESSURE
     Route: 048
  4. FLOMAX [Concomitant]
     Indication: URINARY TRACT DISORDER
     Route: 048
  5. UNKNOWN MEDICATION [Concomitant]
     Indication: NEUROGENIC BLADDER
     Route: 048
  6. VALIUM [Concomitant]
     Indication: URINARY INCONTINENCE
     Route: 048
     Dates: start: 19810101
  7. LORTAB [Concomitant]
     Indication: HEADACHE
     Route: 048
     Dates: start: 20070101
  8. PROZAC [Concomitant]
     Indication: DEPRESSION
     Route: 048

REACTIONS (3)
  - EXPIRED DRUG ADMINISTERED [None]
  - FEELING ABNORMAL [None]
  - WOUND [None]
